FAERS Safety Report 19978438 (Version 1)
Quarter: 2021Q4

REPORT INFORMATION
  Report Type: Spontaneous
  Country: US (occurrence: US)
  Receive Date: 20211020
  Receipt Date: 20211020
  Transmission Date: 20220303
  Serious: No
  Sender: FDA-Public Use
  Company Number: None

PATIENT
  Age: 72 Year
  Sex: Male
  Weight: 78 kg

DRUGS (2)
  1. VANCOMYCIN HYDROCHLORIDE [Suspect]
     Active Substance: VANCOMYCIN HYDROCHLORIDE
     Indication: Osteomyelitis
     Dosage: ?          OTHER ROUTE:IV
     Route: 042
     Dates: start: 20210616, end: 20210714
  2. CEFEPIME HYDROCHLORIDE [Suspect]
     Active Substance: CEFEPIME HYDROCHLORIDE
     Indication: Osteomyelitis
     Dosage: ?          OTHER ROUTE:IV
     Route: 042
     Dates: start: 20210617, end: 20210714

REACTIONS (4)
  - Blood urea increased [None]
  - Acute kidney injury [None]
  - Delirium [None]
  - Blood creatinine increased [None]

NARRATIVE: CASE EVENT DATE: 20210713
